FAERS Safety Report 16549725 (Version 1)
Quarter: 2019Q3

REPORT INFORMATION
  Report Type: Spontaneous
  Country: US (occurrence: US)
  Receive Date: 20190710
  Receipt Date: 20190710
  Transmission Date: 20191004
  Serious: Yes (Other)
  Sender: FDA-Public Use
  Company Number: US-JNJFOC-20190702374

PATIENT
  Age: 7 Year
  Sex: Female

DRUGS (1)
  1. CHILDRENS BENADRYL ALLERGY [Suspect]
     Active Substance: DIPHENHYDRAMINE HYDROCHLORIDE
     Indication: MULTIPLE ALLERGIES
     Dosage: 1 CHEWABLE ONCE
     Route: 048

REACTIONS (2)
  - Vomiting [Recovered/Resolved]
  - Choking [Recovered/Resolved]
